FAERS Safety Report 17059397 (Version 1)
Quarter: 2019Q4

REPORT INFORMATION
  Report Type: Spontaneous
  Country: US (occurrence: US)
  Receive Date: 20191023
  Receipt Date: 20191023
  Transmission Date: 20200122
  Serious: Yes (Life-Threatening, Hospitalization, Other)
  Sender: FDA-Public Use
  Company Number: None

PATIENT
  Age: 60 Year
  Sex: Female

DRUGS (1)
  1. ENBREL [Suspect]
     Active Substance: ETANERCEPT
     Route: 058
     Dates: start: 200401, end: 201910

REACTIONS (5)
  - Atrial fibrillation [None]
  - Hypothyroidism [None]
  - Cardiac failure [None]
  - Intestinal sepsis [None]
  - Crohn^s disease [None]

NARRATIVE: CASE EVENT DATE: 20191023
